FAERS Safety Report 15411629 (Version 1)
Quarter: 2018Q3

REPORT INFORMATION
  Report Type: Other
  Country: GB (occurrence: GB)
  Receive Date: 20180921
  Receipt Date: 20180921
  Transmission Date: 20181010
  Serious: Yes (Life-Threatening, Hospitalization, Other)
  Sender: FDA-Public Use
  Company Number: GB-MACLEODS PHARMACEUTICALS US LTD-MAC2018016602

PATIENT

DRUGS (6)
  1. LORAZEPAM. [Concomitant]
     Active Substance: LORAZEPAM
     Indication: SCHIZOPHRENIA
     Dosage: 2 MILLIGRAM, QD
     Route: 065
     Dates: start: 20180719
  2. CLONAZEPAM. [Concomitant]
     Active Substance: CLONAZEPAM
     Indication: SCHIZOPHRENIA
     Dosage: 2 MILLIGRAM, QD
     Route: 065
     Dates: start: 20180619, end: 20180719
  3. QUETIAPINE. [Suspect]
     Active Substance: QUETIAPINE
     Indication: SCHIZOPHRENIA
     Dosage: TITRATED UPTO 100 MILLIGRAM
     Route: 048
     Dates: start: 20180611, end: 20180619
  4. ARIPIPRAZOLE  5 MG [Suspect]
     Active Substance: ARIPIPRAZOLE
     Indication: SCHIZOPHRENIA
     Dosage: 5 MILLIGRAM, OM (EVERY MORNING)
     Route: 048
     Dates: start: 20180621, end: 20180702
  5. DENZAPINE [Suspect]
     Active Substance: CLOZAPINE
     Indication: SCHIZOPHRENIA
     Dosage: 50 MILLIGRAM, QD
     Route: 048
     Dates: start: 2012, end: 20180526
  6. DENZAPINE [Suspect]
     Active Substance: CLOZAPINE
     Indication: SCHIZOPHRENIA
     Dosage: UNK, TITRATION
     Route: 048
     Dates: start: 20180604, end: 20180605

REACTIONS (1)
  - Acute promyelocytic leukaemia [Not Recovered/Not Resolved]

NARRATIVE: CASE EVENT DATE: 201805
